FAERS Safety Report 6033310-5 (Version None)
Quarter: 2009Q1

REPORT INFORMATION
  Report Type: 
  Country: None (occurrence: None)
  Receive Date: 20090109
  Receipt Date: 20090107
  Transmission Date: 20090719
  Serious: Yes (Death, Other)
  Sender: FDA-Public Use
  Company Number: DE-ELI_LILLY_AND_COMPANY-DE200901000892

PATIENT
  Sex: Female

DRUGS (10)
  1. XIGRIS [Suspect]
     Indication: SEPSIS
     Dosage: 195 MG, UNKNOWN
     Route: 042
     Dates: start: 20081215, end: 20081218
  2. FENTANYL-100 [Concomitant]
     Dosage: UNK, UNKNOWN
     Route: 065
  3. DORMICUM /00036201/ [Concomitant]
     Dosage: UNK, UNKNOWN
     Route: 065
  4. HEPARIN [Concomitant]
     Dosage: UNK, UNKNOWN
     Route: 065
  5. FORTUM [Concomitant]
     Dosage: UNK, UNKNOWN
     Route: 065
  6. AVELOX [Concomitant]
     Dosage: UNK, UNKNOWN
     Route: 065
  7. HYDROCORTISON [Concomitant]
     Dosage: UNK, UNKNOWN
     Route: 065
  8. MUCOSOLVAN [Concomitant]
     Dosage: UNK, UNKNOWN
     Route: 065
  9. STEROFUNDIN [Concomitant]
     Dosage: UNK, UNKNOWN
     Route: 065
  10. PANTOPRAZOLE SODIUM [Concomitant]
     Dosage: UNK, UNKNOWN
     Route: 065

REACTIONS (3)
  - HERPES VIRUS INFECTION [None]
  - PNEUMONIA [None]
  - SUBARACHNOID HAEMORRHAGE [None]
